FAERS Safety Report 19446631 (Version 1)
Quarter: 2021Q2

REPORT INFORMATION
  Report Type: Other
  Country: US (occurrence: US)
  Receive Date: 20210622
  Receipt Date: 20210622
  Transmission Date: 20210717
  Serious: Yes (Hospitalization)
  Sender: FDA-Public Use
  Company Number: US-ROCHE-2854296

PATIENT
  Sex: Female

DRUGS (4)
  1. VITAMIN D3 [Concomitant]
     Active Substance: CHOLECALCIFEROL
  2. ELIQUIS [Concomitant]
     Active Substance: APIXABAN
  3. ALECENSA [Suspect]
     Active Substance: ALECTINIB HYDROCHLORIDE
     Indication: LUNG NEOPLASM MALIGNANT
     Dosage: TAKE 4 CAPSULE(S) BY MOUTH TWICE A DAY WITH MEALS.SWALLOW WHOLE; DO NOT OPEN CAPSULE OR DISSOLVE CON
     Route: 048
  4. XGEVA [Concomitant]
     Active Substance: DENOSUMAB

REACTIONS (1)
  - Pulmonary oedema [Unknown]
